FAERS Safety Report 9174174 (Version 1)
Quarter: 2013Q1

REPORT INFORMATION
  Report Type: Spontaneous
  Country: US (occurrence: None)
  Receive Date: 20130315
  Receipt Date: 20130315
  Transmission Date: 20140127
  Serious: Yes (Other)
  Sender: FDA-Public Use
  Company Number: DSU-2013-02081

PATIENT
  Age: 75 Year
  Sex: Female

DRUGS (1)
  1. BENICAR HCT(HYDROCHLOROTHIAZIDE, OLMESARTAN MEDOXOMIL)(TABLET)(HYDROCHLOROTHIAZIDE, OLMESARTAN MEDOXOMIL) [Suspect]
     Indication: HYPERTENSION
     Route: 048

REACTIONS (1)
  - Breast cancer [None]
